FAERS Safety Report 8771543 (Version 3)
Quarter: 2013Q1

REPORT INFORMATION
  Report Type: Report from Study
  Country: JP (occurrence: JP)
  Receive Date: 20120905
  Receipt Date: 20130107
  Transmission Date: 20140127
  Serious: Yes (Other)
  Sender: FDA-Public Use
  Company Number: JP-VERTEX PHARMACEUTICAL INC.-2012-020572

PATIENT
  Age: 61 Year
  Sex: Female

DRUGS (24)
  1. VX-950 (TELAPREVIR) [Suspect]
     Indication: CHRONIC HEPATITIS C
     Dosage: 1500 MG, QD
     Route: 048
     Dates: start: 20120625, end: 20120709
  2. VX-950 (TELAPREVIR) [Suspect]
     Dosage: 1500 MG, QD
     Route: 048
     Dates: start: 20120717, end: 20120731
  3. VX-950 (TELAPREVIR) [Suspect]
     Dosage: 1000 MG, QD
     Route: 048
     Dates: start: 20120807, end: 20120827
  4. VX-950 (TELAPREVIR) [Suspect]
     Dosage: 750 MG, QD
     Route: 048
     Dates: start: 20120904, end: 20120925
  5. RIBAVIRIN [Suspect]
     Indication: CHRONIC HEPATITIS C
     Dosage: 400 MG, QD
     Route: 048
     Dates: start: 20120625, end: 20120704
  6. RIBAVIRIN [Suspect]
     Dosage: 200 MG, QD
     Route: 048
     Dates: start: 20120705, end: 20120721
  7. RIBAVIRIN [Suspect]
     Dosage: 200 MG, QD
     Route: 048
     Dates: start: 20120724, end: 20120827
  8. RIBAVIRIN [Suspect]
     Dosage: UNK
     Route: 048
     Dates: start: 20120904
  9. RIBAVIRIN [Suspect]
     Dosage: 200 MG, QD
     Route: 048
     Dates: start: 20121002
  10. PEGINTERFERON ALFA-2B [Suspect]
     Indication: CHRONIC HEPATITIS C
     Dosage: 1.5 ?G/KG, QW
     Route: 058
     Dates: start: 20120625, end: 20120701
  11. PEGINTERFERON ALFA-2B [Suspect]
     Dosage: 1.0 ?G/KG, QW
     Route: 058
     Dates: start: 20120702, end: 20120709
  12. PEGINTERFERON ALFA-2B [Suspect]
     Dosage: 1.5 ?G/KG, QW
     Route: 058
     Dates: start: 20120717, end: 20120826
  13. PEGINTERFERON ALFA-2B [Suspect]
     Dosage: 1 ?G/KG, QW
     Route: 058
     Dates: start: 20120904, end: 20120910
  14. PEGINTERFERON ALFA-2B [Suspect]
     Dosage: 0.7 ?G/KG, QW
     Dates: start: 20120911, end: 20120924
  15. PEGINTERFERON ALFA-2B [Suspect]
     Dosage: 0.6 ?G/KG, QW
     Route: 058
     Dates: start: 20120925, end: 20121015
  16. PEGINTERFERON ALFA-2B [Suspect]
     Dosage: 0.3 ?G/KG, QW
     Route: 058
     Dates: start: 20121016, end: 20121022
  17. PEGINTERFERON ALFA-2B [Suspect]
     Dosage: 0.15 ?G/KG, QW
     Route: 058
     Dates: start: 20121023, end: 20121118
  18. PEGINTERFERON ALFA-2B [Suspect]
     Dosage: 0.3 ?G/KG, QW
     Route: 058
     Dates: start: 20121119
  19. URSO                               /00465701/ [Concomitant]
     Dosage: 600 MG, QD
     Route: 048
  20. LIVACT                             /00847901/ [Concomitant]
     Dosage: 12.45 G, QD
     Route: 048
  21. TAKEPRON [Concomitant]
     Dosage: 30 MG, QD
     Route: 048
  22. ALDACTONE A [Concomitant]
     Dosage: 25 MG, QD
     Route: 048
  23. TALION                             /01587402/ [Concomitant]
     Dosage: 20 MG, QD
     Route: 048
     Dates: start: 20120625, end: 20120925
  24. L CARTIN [Concomitant]
     Dosage: 100 MG, QD
     Route: 048
     Dates: start: 20120731

REACTIONS (3)
  - Hepatic encephalopathy [Recovered/Resolved]
  - Neutrophil count decreased [Not Recovered/Not Resolved]
  - Neutrophil count decreased [Recovered/Resolved]
